FAERS Safety Report 7982176-2 (Version None)
Quarter: 2011Q4

REPORT INFORMATION
  Report Type: 
  Country: None (occurrence: None)
  Receive Date: 20111212
  Receipt Date: 20111129
  Transmission Date: 20120403
  Serious: Yes (Life-Threatening, Hospitalization, Other)
  Sender: FDA-Public Use
  Company Number: 2011MA016965

PATIENT
  Sex: Male

DRUGS (22)
  1. DOCUSATE SODIUM [Concomitant]
  2. LISINOPRIL [Concomitant]
  3. SINGULAIR [Concomitant]
  4. CARDIZEM [Concomitant]
  5. PAROXETINE HCL [Concomitant]
  6. OXYCODONE HCL AND ACETAMINOPHEN [Concomitant]
  7. DUONEB [Concomitant]
  8. TOPROL-XL [Concomitant]
  9. DIGOXIN [Suspect]
     Indication: ARRHYTHMIA
     Dosage: 0.25 MG;QD;PO
     Route: 048
     Dates: start: 20070601, end: 20080301
  10. DIGOXIN [Suspect]
     Indication: ATRIAL FIBRILLATION
     Dosage: 0.25 MG;QD;PO
     Route: 048
     Dates: start: 20070601, end: 20080301
  11. LORAZEPAM [Concomitant]
  12. ADVAIR DISKUS 100/50 [Concomitant]
  13. BRONCHODILATOR [Concomitant]
  14. VYTORIN [Concomitant]
  15. WARFARIN SODIUM [Concomitant]
  16. COMBIVENT [Concomitant]
  17. VERAPAMIL [Concomitant]
  18. HEPARIN [Concomitant]
  19. LOPRESSOR [Concomitant]
  20. ZOSYN [Concomitant]
  21. LASIX [Concomitant]
  22. LEVOPHED [Concomitant]

REACTIONS (22)
  - ACUTE RESPIRATORY FAILURE [None]
  - ATRIAL FIBRILLATION [None]
  - PNEUMONIA [None]
  - HYPERTENSION [None]
  - CARDIAC FAILURE CONGESTIVE [None]
  - HAEMATOCRIT DECREASED [None]
  - TOXICITY TO VARIOUS AGENTS [None]
  - CHRONIC OBSTRUCTIVE PULMONARY DISEASE [None]
  - MYOCARDIAL INFARCTION [None]
  - MITRAL VALVE INCOMPETENCE [None]
  - PULMONARY OEDEMA [None]
  - HAEMOGLOBIN DECREASED [None]
  - ANXIETY [None]
  - SOCIAL AVOIDANT BEHAVIOUR [None]
  - CORONARY ARTERY DISEASE [None]
  - ARTERIOSCLEROSIS [None]
  - INJURY [None]
  - PAIN [None]
  - ECONOMIC PROBLEM [None]
  - CONDITION AGGRAVATED [None]
  - RESPIRATORY DISTRESS [None]
  - CARDIAC MURMUR [None]
